FAERS Safety Report 4764272-6 (Version None)
Quarter: 2005Q3

REPORT INFORMATION
  Report Type: 
  Country: None (occurrence: None)
  Receive Date: 20050907
  Receipt Date: 20050907
  Transmission Date: 20060218
  Serious: Yes (Other)
  Sender: FDA-Public Use
  Company Number: None

PATIENT
  Age: 39 Year
  Sex: Male
  Weight: 82.5547 kg

DRUGS (4)
  1. PAXIL [Suspect]
     Dates: start: 20030101
  2. ZYPREXA [Suspect]
     Dosage: 15 MG
  3. BENZODIAZAPINES [Concomitant]
  4. ANTIPSYCHOTICS [Concomitant]

REACTIONS (4)
  - CONVULSION [None]
  - JOINT RANGE OF MOTION DECREASED [None]
  - MUSCULOSKELETAL STIFFNESS [None]
  - PARAESTHESIA [None]
